FAERS Safety Report 7746068-6 (Version None)
Quarter: 2011Q3

REPORT INFORMATION
  Report Type: 
  Country: None (occurrence: None)
  Receive Date: 20110907
  Receipt Date: 20110825
  Transmission Date: 20111222
  Serious: Yes (Other)
  Sender: FDA-Public Use
  Company Number: 201105IM001920

PATIENT
  Age: 30 Year
  Sex: Male

DRUGS (4)
  1. INTERFERON GAMMA NOS [Suspect]
     Indication: SYSTEMIC MYCOSIS
  2. CASPOFUNGIN ACETATE [Suspect]
     Indication: SYSTEMIC MYCOSIS
     Dosage: 150 MG, DAILY
  3. TERBINAFINE HCL [Suspect]
     Indication: SYSTEMIC MYCOSIS
  4. POSACONAZOLE [Suspect]
     Indication: SYSTEMIC MYCOSIS

REACTIONS (3)
  - SYSTEMIC MYCOSIS [None]
  - BRAIN ABSCESS [None]
  - INTRASPINAL ABSCESS [None]
